FAERS Safety Report 8174505-4 (Version None)
Quarter: 2012Q1

REPORT INFORMATION
  Report Type: 
  Country: None (occurrence: None)
  Receive Date: 20120229
  Receipt Date: 20120220
  Transmission Date: 20120608
  Serious: No
  Sender: FDA-Public Use
  Company Number: AT-ABBOTT-10P-009-0653543-00

PATIENT
  Age: 33 Year
  Sex: Female
  Weight: 60 kg

DRUGS (29)
  1. ETALPHA [Concomitant]
     Indication: PRODUCT USED FOR UNKNOWN INDICATION
     Route: 048
  2. ETALPHA [Concomitant]
     Route: 048
  3. CENIPRES [Concomitant]
     Indication: PRODUCT USED FOR UNKNOWN INDICATION
     Dosage: 20/40MG PER DAY
     Route: 048
  4. NEPHROTRANS [Concomitant]
     Indication: PRODUCT USED FOR UNKNOWN INDICATION
     Route: 048
  5. RAMIPRIL [Concomitant]
     Indication: PRODUCT USED FOR UNKNOWN INDICATION
     Route: 048
  6. NITROLINGUAL [Concomitant]
     Indication: PRODUCT USED FOR UNKNOWN INDICATION
     Route: 060
  7. RENVELA [Concomitant]
     Route: 048
  8. RENACET [Concomitant]
     Indication: PRODUCT USED FOR UNKNOWN INDICATION
     Route: 048
  9. ZEMPLAR [Suspect]
     Indication: HYPERPARATHYROIDISM
     Dosage: 5 UG 3 TIMES PER WEEK
     Route: 042
     Dates: start: 20090710, end: 20091130
  10. ETALPHA [Concomitant]
  11. VENOFER [Concomitant]
     Indication: PRODUCT USED FOR UNKNOWN INDICATION
     Dosage: 40MG/ML PER WEEK
     Route: 042
  12. ASPIRIN [Concomitant]
     Indication: PRODUCT USED FOR UNKNOWN INDICATION
     Route: 048
  13. FERMED [Concomitant]
     Indication: PRODUCT USED FOR UNKNOWN INDICATION
     Dosage: 100 MG/5 ML
     Route: 042
  14. NEBIVOLOL [Concomitant]
     Indication: PRODUCT USED FOR UNKNOWN INDICATION
     Route: 048
  15. ARANESP [Concomitant]
     Route: 042
  16. PASPERTIN [Concomitant]
     Indication: PRODUCT USED FOR UNKNOWN INDICATION
     Dosage: 60 GTT
     Route: 048
  17. FOLSAN [Concomitant]
     Indication: PRODUCT USED FOR UNKNOWN INDICATION
     Route: 048
  18. MOXONIBENE [Concomitant]
     Indication: PRODUCT USED FOR UNKNOWN INDICATION
     Route: 048
  19. SIMVASTATIN [Concomitant]
     Indication: PRODUCT USED FOR UNKNOWN INDICATION
     Route: 048
  20. ARANESP [Concomitant]
     Route: 042
  21. ARANESP [Concomitant]
     Indication: PRODUCT USED FOR UNKNOWN INDICATION
     Route: 042
  22. RESONIUM A PULVER [Concomitant]
     Indication: PRODUCT USED FOR UNKNOWN INDICATION
     Route: 048
  23. OLEOVIT D3 [Concomitant]
     Indication: PRODUCT USED FOR UNKNOWN INDICATION
     Dosage: 20 GTT
     Route: 048
  24. NEPHROTRANS [Concomitant]
     Route: 048
  25. PANTOPRAZOLE SODIUM [Concomitant]
     Indication: PRODUCT USED FOR UNKNOWN INDICATION
     Route: 048
  26. CINACALCET HYDROCHLORIDE [Concomitant]
     Indication: PRODUCT USED FOR UNKNOWN INDICATION
     Route: 048
  27. ZEMPLAR [Suspect]
     Dosage: 10 UG, 2 TIMES PER WEEK
     Route: 042
     Dates: start: 20090901, end: 20091130
  28. RENVELA [Concomitant]
     Indication: PRODUCT USED FOR UNKNOWN INDICATION
     Route: 048
  29. PLAVIX [Concomitant]
     Indication: PRODUCT USED FOR UNKNOWN INDICATION
     Route: 048

REACTIONS (8)
  - ARTERIOSCLEROSIS CORONARY ARTERY [None]
  - DIASTOLIC DYSFUNCTION [None]
  - CARDIAC HYPERTROPHY [None]
  - ECHOCARDIOGRAM ABNORMAL [None]
  - ANGIOGRAM ABNORMAL [None]
  - PAIN IN EXTREMITY [None]
  - CHEST PAIN [None]
  - BLOOD PARATHYROID HORMONE DECREASED [None]
